FAERS Safety Report 9510977 (Version 2)
Quarter: 2014Q2

REPORT INFORMATION
  Report Type: Spontaneous
  Country: NL (occurrence: None)
  Receive Date: 20130905
  Receipt Date: 20140527
  Transmission Date: 20141212
  Serious: Yes (Death)
  Sender: FDA-Public Use
  Company Number: SP06955

PATIENT
  Age: 71 Year
  Sex: Female
  Weight: 10 kg

DRUGS (5)
  1. MOVIPREP [Suspect]
     Indication: BOWEL PREPARATION
     Route: 048
     Dates: start: 20130414, end: 20130415
  2. CO-DIOVAN [Suspect]
     Indication: HYPERTENSION
     Route: 048
     Dates: start: 2012
  3. ATENOLOL [Concomitant]
  4. CEMETIDINE [Concomitant]
  5. LORAZEPAM [Concomitant]

REACTIONS (17)
  - Pallor [None]
  - Oedema peripheral [None]
  - Oedema peripheral [None]
  - Unresponsive to stimuli [None]
  - Ventricular fibrillation [None]
  - Shock [None]
  - Hypokalaemia [None]
  - Skin discolouration [None]
  - Oedema peripheral [None]
  - Metabolic acidosis [None]
  - Renal disorder [None]
  - Hypoxia [None]
  - Alkalosis [None]
  - General physical health deterioration [None]
  - Miosis [None]
  - Incorrect dose administered [None]
  - Blood pressure decreased [None]
